FAERS Safety Report 7000490-4 (Version None)
Quarter: 2010Q3

REPORT INFORMATION
  Report Type: 
  Country: None (occurrence: None)
  Receive Date: 20100920
  Receipt Date: 20100916
  Transmission Date: 20110219
  Serious: Yes (Other)
  Sender: FDA-Public Use
  Company Number: JP-BAYER-201014439BYL

PATIENT
  Age: 81 Year
  Sex: Male

DRUGS (1)
  1. BUFFERIN [Suspect]
     Indication: ANTIPLATELET THERAPY
     Route: 048
     Dates: end: 20060101

REACTIONS (1)
  - PULMONARY FIBROSIS [None]
